FAERS Safety Report 24652205 (Version 1)
Quarter: 2024Q4

REPORT INFORMATION
  Report Type: Spontaneous
  Country: JP (occurrence: JP)
  Receive Date: 20241122
  Receipt Date: 20241122
  Transmission Date: 20250115
  Serious: Yes (Other)
  Sender: JOHNSON AND JOHNSON
  Company Number: JP-JNJFOC-20241142607

PATIENT
  Age: 6 Decade
  Sex: Male

DRUGS (7)
  1. RILPIVIRINE [Suspect]
     Active Substance: RILPIVIRINE
     Indication: Product used for unknown indication
     Dosage: DOSE UNKNOWN
     Route: 030
     Dates: start: 202407, end: 202407
  2. RILPIVIRINE [Suspect]
     Active Substance: RILPIVIRINE
     Dosage: DOSE UNKNOWN
     Route: 030
     Dates: start: 202409, end: 202409
  3. RILPIVIRINE [Suspect]
     Active Substance: RILPIVIRINE
     Dosage: DOSE UNKNOWN
     Route: 030
     Dates: start: 202406, end: 202406
  4. VOCABRIA [Suspect]
     Active Substance: CABOTEGRAVIR SODIUM
     Indication: Product used for unknown indication
     Dosage: DOSE UNKNOWN
     Route: 030
     Dates: start: 202406, end: 202406
  5. VOCABRIA [Suspect]
     Active Substance: CABOTEGRAVIR SODIUM
     Dosage: DOSE UNKNOWN
     Route: 030
     Dates: start: 202407, end: 202407
  6. VOCABRIA [Suspect]
     Active Substance: CABOTEGRAVIR SODIUM
     Dosage: DOSE UNKNOWN
     Route: 030
     Dates: start: 202409, end: 202409
  7. BIKTARVY [Concomitant]
     Active Substance: BICTEGRAVIR SODIUM\EMTRICITABINE\TENOFOVIR ALAFENAMIDE FUMARATE
     Indication: Product used for unknown indication
     Dosage: DOSE UNKNOWN
     Route: 048
     Dates: start: 202409

REACTIONS (3)
  - Alanine aminotransferase increased [Unknown]
  - Hepatitis B [Unknown]
  - Aspartate aminotransferase increased [Unknown]
